FAERS Safety Report 8516734-3 (Version None)
Quarter: 2012Q2

REPORT INFORMATION
  Report Type: 
  Country: None (occurrence: None)
  Receive Date: 20120406
  Receipt Date: 20100304
  Transmission Date: 20120825
  Serious: Yes (Death, Other)
  Sender: FDA-Public Use
  Company Number: PHEH2010US00649

PATIENT
  Age: 76 Year
  Sex: Female

DRUGS (5)
  1. TASIGNA [Suspect]
     Indication: ACUTE LYMPHOCYTIC LEUKAEMIA
     Dosage: 400 MG, QD 200 MG, QD 200 MG, QOD 200 MG EVERY OTHER DAY 200 MG 2 OF 3 DAYS
     Dates: start: 20091120
  2. TASIGNA [Suspect]
     Indication: ACUTE LYMPHOCYTIC LEUKAEMIA
     Dosage: 400 MG, QD 200 MG, QD 200 MG, QOD 200 MG EVERY OTHER DAY 200 MG 2 OF 3 DAYS
     Dates: start: 20091113, end: 20091116
  3. TASIGNA [Suspect]
     Indication: ACUTE LYMPHOCYTIC LEUKAEMIA
     Dosage: 400 MG, QD 200 MG, QD 200 MG, QOD 200 MG EVERY OTHER DAY 200 MG 2 OF 3 DAYS
     Dates: start: 20091116, end: 20091119
  4. TASIGNA [Suspect]
     Indication: ACUTE LYMPHOCYTIC LEUKAEMIA
     Dosage: 400 MG, QD 200 MG, QD 200 MG, QOD 200 MG EVERY OTHER DAY 200 MG 2 OF 3 DAYS
     Dates: start: 20091214
  5. TASIGNA [Suspect]
     Indication: ACUTE LYMPHOCYTIC LEUKAEMIA
     Dosage: 400 MG, QD 200 MG, QD 200 MG, QOD 200 MG EVERY OTHER DAY 200 MG 2 OF 3 DAYS
     Dates: start: 20091207, end: 20091213

REACTIONS (5)
  - ANAEMIA [None]
  - DYSPNOEA [None]
  - THROMBOCYTOPENIA [None]
  - NEOPLASM MALIGNANT [None]
  - NEUTROPENIA [None]
